FAERS Safety Report 9122954 (Version 2)
Quarter: 2014Q1

REPORT INFORMATION
  Report Type: Spontaneous
  Country: US (occurrence: US)
  Receive Date: 20130227
  Receipt Date: 20140205
  Transmission Date: 20141002
  Serious: No
  Sender: FDA-Public Use
  Company Number: US-GLAXOSMITHKLINE-A0996140A

PATIENT
  Age: 33 Year
  Sex: Female

DRUGS (3)
  1. VALACYCLOVIR [Suspect]
     Indication: GENITAL HERPES
     Dosage: 400MG TWICE PER DAY
     Route: 048
     Dates: start: 200603, end: 20121003
  2. FOLIC ACID [Suspect]
     Indication: PRODUCT USED FOR UNKNOWN INDICATION
     Dosage: 400MCG PER DAY
     Route: 065
     Dates: start: 201206
  3. PRENATAL VITAMINS [Concomitant]
     Dates: start: 201208

REACTIONS (2)
  - Incorrect dose administered [Unknown]
  - Exposure during pregnancy [Unknown]
